FAERS Safety Report 6623505-1 (Version None)
Quarter: 2010Q1

REPORT INFORMATION
  Report Type: 
  Country: None (occurrence: None)
  Receive Date: 20100305
  Receipt Date: 20100225
  Transmission Date: 20100710
  Serious: Yes (Death)
  Sender: FDA-Public Use
  Company Number: 2010SP007232

PATIENT
  Age: 26 Year
  Sex: Female

DRUGS (9)
  1. REFLEX (MIRTAZAPINE / 01293201 / ) [Suspect]
     Indication: DEPRESSION
     Dosage: 15 MG;QD;PO; 30 MG;QD;PO; 45 MG;QD;PO
     Route: 048
     Dates: start: 20091105, end: 20091125
  2. REFLEX (MIRTAZAPINE / 01293201 / ) [Suspect]
     Indication: DEPRESSION
     Dosage: 15 MG;QD;PO; 30 MG;QD;PO; 45 MG;QD;PO
     Route: 048
     Dates: start: 20091126, end: 20091202
  3. REFLEX (MIRTAZAPINE / 01293201 / ) [Suspect]
     Indication: DEPRESSION
     Dosage: 15 MG;QD;PO; 30 MG;QD;PO; 45 MG;QD;PO
     Route: 048
     Dates: start: 20091203, end: 20091226
  4. FLUVOXAMINE MALEATE [Suspect]
     Indication: DEPRESSION
     Dosage: 25 MG;QD;PO; 50 MG;QD;PO; 100 MG;QD;PO
     Route: 048
     Dates: start: 20090718, end: 20090724
  5. FLUVOXAMINE MALEATE [Suspect]
     Indication: DEPRESSION
     Dosage: 25 MG;QD;PO; 50 MG;QD;PO; 100 MG;QD;PO
     Route: 048
     Dates: start: 20090725, end: 20091216
  6. FLUVOXAMINE MALEATE [Suspect]
     Indication: DEPRESSION
     Dosage: 25 MG;QD;PO; 50 MG;QD;PO; 100 MG;QD;PO
     Route: 048
     Dates: start: 20091217, end: 20091226
  7. DEPAS (ETIZOLAM) [Suspect]
     Indication: INSOMNIA
     Dosage: 2 MG;PRN;PO
     Route: 048
     Dates: start: 20091203, end: 20091226
  8. PZC (PERPHENAZINE MALEATE) [Suspect]
     Indication: DEPRESSION
     Dosage: 6 MF;QD;PO
     Route: 048
     Dates: start: 20091210, end: 20091226
  9. ANTENOLOL [Concomitant]

REACTIONS (3)
  - COMPLETED SUICIDE [None]
  - PLEURAL HAEMORRHAGE [None]
  - TREATMENT NONCOMPLIANCE [None]
